FAERS Safety Report 24863096 (Version 2)
Quarter: 2025Q1

REPORT INFORMATION
  Report Type: Report from Study
  Country: BR (occurrence: BR)
  Receive Date: 20250120
  Receipt Date: 20250225
  Transmission Date: 20250408
  Serious: No
  Sender: JOHNSON AND JOHNSON
  Company Number: BR-JNJFOC-20241285174

PATIENT
  Age: 67 Year
  Sex: Male
  Weight: 76 kg

DRUGS (2)
  1. GOLIMUMAB [Suspect]
     Active Substance: GOLIMUMAB
     Indication: Rheumatoid arthritis
     Dosage: STRENGTH:50.00 MG / 0.50 ML
     Route: 058
  2. GOLIMUMAB [Suspect]
     Active Substance: GOLIMUMAB

REACTIONS (2)
  - Device defective [Unknown]
  - Product dose omission issue [Unknown]

NARRATIVE: CASE EVENT DATE: 20241226
